FAERS Safety Report 4364164-0 (Version None)
Quarter: 2004Q2

REPORT INFORMATION
  Report Type: 
  Country: None (occurrence: None)
  Receive Date: 20040519
  Receipt Date: 20040507
  Transmission Date: 20050107
  Serious: Yes (Hospitalization)
  Sender: FDA-Public Use
  Company Number: US-JNJFOC-20040303474

PATIENT
  Age: 77 Year
  Sex: Female

DRUGS (11)
  1. INFLIXIMAB (INFLIXIMAB, RECOMBINANT) LYOPHILIZED POWDER [Suspect]
     Indication: RHEUMATOID ARTHRITIS
     Dosage: INTRAVENOUS
     Route: 042
     Dates: start: 20030310, end: 20030324
  2. METHOTREXATE [Concomitant]
  3. PREDNISONE [Concomitant]
  4. LOTENSIN (BENAZEPRIL HYDROCHLOROIDE) [Concomitant]
  5. CELEXA [Concomitant]
  6. TYLENOL W/ CODEINE NO. 3 [Concomitant]
  7. PROTONIX [Concomitant]
  8. FOLIC ACID [Concomitant]
  9. LIPITOR [Concomitant]
  10. PREMARIN [Concomitant]
  11. DITROPAN XL [Concomitant]

REACTIONS (6)
  - ASTHENIA [None]
  - FALL [None]
  - IMMOBILE [None]
  - MALAISE [None]
  - PNEUMONIA [None]
  - RHEUMATOID ARTHRITIS [None]
